FAERS Safety Report 6936885-4 (Version None)
Quarter: 2010Q3

REPORT INFORMATION
  Report Type: 
  Country: None (occurrence: None)
  Receive Date: 20100823
  Receipt Date: 20100812
  Transmission Date: 20110219
  Serious: Yes (Other)
  Sender: FDA-Public Use
  Company Number: CA-JNJFOC-20100804785

PATIENT
  Sex: Female
  Weight: 71 kg

DRUGS (3)
  1. REMICADE [Suspect]
     Indication: CROHN'S DISEASE
     Dosage: 19 DOSES, 400 MG THEN ALTERNATING WITH A ILLEGIBLE DOSE
     Route: 042
  2. REMICADE [Suspect]
     Dosage: 400 MG THEN ALTERNATING WITH A ILLEGIBLE DOSE
     Route: 042
  3. TYLENOL W/ CODEINE NO. 2 [Concomitant]

REACTIONS (2)
  - ANAL ABSCESS [None]
  - HAEMORRHAGE [None]
